FAERS Safety Report 6553529-4 (Version None)
Quarter: 2010Q1

REPORT INFORMATION
  Report Type: 
  Country: None (occurrence: None)
  Receive Date: 20100127
  Receipt Date: 20100120
  Transmission Date: 20100710
  Serious: Yes (Hospitalization)
  Sender: FDA-Public Use
  Company Number: AT-ROCHE-680460

PATIENT
  Sex: Male
  Weight: 80 kg

DRUGS (3)
  1. PEG-INTERFERON ALFA 2A (RO 25-8310) [Suspect]
     Route: 058
     Dates: start: 20090703
  2. RIBAVIRIN [Suspect]
     Route: 048
     Dates: start: 20090703
  3. COMPENSAN [Suspect]
     Indication: DRUG USE FOR UNKNOWN INDICATION
     Route: 048
     Dates: start: 20070701

REACTIONS (2)
  - PNEUMONIA [None]
  - RENAL FAILURE ACUTE [None]
